FAERS Safety Report 24864937 (Version 1)
Quarter: 2025Q1

REPORT INFORMATION
  Report Type: Spontaneous
  Country: IN (occurrence: IN)
  Receive Date: 20250121
  Receipt Date: 20250121
  Transmission Date: 20250408
  Serious: Yes (Hospitalization, Other)
  Sender: AMNEAL
  Company Number: IN-AMNEAL PHARMACEUTICALS-2025-AMRX-00101

PATIENT
  Age: 25 Year
  Sex: Male

DRUGS (1)
  1. OFLOXACIN [Suspect]
     Active Substance: OFLOXACIN
     Indication: Typhoid fever
     Dosage: 400 MILLIGRAM, BID
     Route: 048

REACTIONS (2)
  - Hallucination, auditory [Recovered/Resolved]
  - Acute psychosis [Recovered/Resolved]
